FAERS Safety Report 8695112 (Version 2)
Quarter: 2015Q2

REPORT INFORMATION
  Report Type: Report from Study
  Country: GB (occurrence: GB)
  Receive Date: 20120731
  Receipt Date: 20150518
  Transmission Date: 20150821
  Serious: Yes (Hospitalization)
  Sender: FDA-Public Use
  Company Number: GB-ROCHE-1050492

PATIENT
  Age: 72 Year
  Sex: Male
  Weight: 90 kg

DRUGS (19)
  1. CAPECITABINE. [Suspect]
     Active Substance: CAPECITABINE
     Indication: ADENOCARCINOMA GASTRIC
     Dosage: DATE OF MOST RECENT DOSE: 16/FEB/2012; DOSE TAKEN:1500 MG
     Route: 042
     Dates: start: 20120208, end: 20120208
  2. OMEPRAZOLE. [Concomitant]
     Active Substance: OMEPRAZOLE
     Route: 048
     Dates: start: 20120222
  3. BEVACIZUMAB [Suspect]
     Active Substance: BEVACIZUMAB
     Indication: ADENOCARCINOMA GASTRIC
     Dosage: LAST DOSE PRIOR TO SAE WAS UPDATED FROM 08/FEB/2012 TO 21/FEB/2012; LAST DOSE TAKEN: 725 MG; DATE OF
     Route: 042
     Dates: start: 20120208
  4. EPIRUBICIN [Suspect]
     Active Substance: EPIRUBICIN
     Indication: ADENOCARCINOMA GASTRIC
     Dosage: LAST DOSE: 108 MG; DATE OF MOST RECENT DOSE WAS UPDATED FROM 8/FEB/2012 TO 21/MAR/2012
     Route: 042
     Dates: start: 20120208
  5. AMLODIPINE [Concomitant]
     Active Substance: AMLODIPINE BESYLATE
     Route: 065
     Dates: start: 20120203, end: 20120226
  6. NYSTATIN. [Concomitant]
     Active Substance: NYSTATIN
     Dosage: 400000 IV
     Route: 048
     Dates: start: 20120405
  7. CAPECITABINE. [Suspect]
     Active Substance: CAPECITABINE
     Dosage: LAST DOSE TAKEN: 725 MG; DATE OF MOST RECENT DOSE: 4/APR/2012
     Route: 048
     Dates: start: 20120209
  8. OMEPRAZOLE. [Concomitant]
     Active Substance: OMEPRAZOLE
     Route: 048
     Dates: start: 1990
  9. COCODAMOL [Concomitant]
     Active Substance: ACETAMINOPHEN\CODEINE PHOSPHATE
     Dosage: 11-BD
     Route: 048
     Dates: start: 20120223
  10. CYCLIZINE [Concomitant]
     Active Substance: CYCLIZINE
     Route: 048
     Dates: start: 20120405
  11. NORMACOL (UNITED KINGDOM) [Concomitant]
     Dosage: T
     Route: 048
     Dates: start: 20120226
  12. DOCUSATE SODIUM. [Concomitant]
     Active Substance: DOCUSATE SODIUM
     Route: 048
     Dates: start: 20120405
  13. ONDANSETRON [Concomitant]
     Active Substance: ONDANSETRON
     Route: 048
     Dates: start: 20120405
  14. DIFFLAM [Concomitant]
     Active Substance: BENZYDAMINE HYDROCHLORIDE
     Dosage: 30 MU
     Route: 048
     Dates: start: 20120401
  15. CAPECITABINE. [Suspect]
     Active Substance: CAPECITABINE
     Dosage: DATE OF MOST RECENT DOSE PRIOR TO SAE: 04/APR/2012; LAST DOSE TAKEN: 1000 IN THE MORNING AND 1500 IN
     Route: 048
     Dates: start: 20120209
  16. CISPLATIN. [Suspect]
     Active Substance: CISPLATIN
     Indication: ADENOCARCINOMA GASTRIC
     Dosage: LAST DOSE PRIOR TO SAE: 08/FEB/2012; LAST DOSE: 130 MG
     Route: 042
     Dates: start: 20120208
  17. NORMACOL (UNITED KINGDOM) [Concomitant]
     Route: 048
     Dates: start: 20120405
  18. PARACETAMOL [Concomitant]
     Active Substance: ACETAMINOPHEN
     Route: 065
     Dates: start: 20120222, end: 20120222
  19. COCODAMOL [Concomitant]
     Active Substance: ACETAMINOPHEN\CODEINE PHOSPHATE
     Route: 048
     Dates: start: 20120405

REACTIONS (3)
  - Circulatory collapse [Recovered/Resolved]
  - Chest pain [Recovered/Resolved]
  - Fatigue [Recovered/Resolved]

NARRATIVE: CASE EVENT DATE: 20120216
